FAERS Safety Report 13024496 (Version 4)
Quarter: 2017Q1

REPORT INFORMATION
  Report Type: Spontaneous
  Country: US (occurrence: US)
  Receive Date: 20161213
  Receipt Date: 20170118
  Transmission Date: 20170428
  Serious: Yes (Hospitalization)
  Sender: FDA-Public Use
  Company Number: US-ACTELION-A-US2016-146719

PATIENT
  Age: 58 Year
  Sex: Female

DRUGS (5)
  1. ADEMPAS [Concomitant]
     Active Substance: RIOCIGUAT
  2. TRACLEER [Suspect]
     Active Substance: BOSENTAN
     Indication: PULMONARY ARTERIAL HYPERTENSION
     Dosage: 125 MG, BID
     Route: 048
     Dates: start: 20100422
  3. REVATIO [Concomitant]
     Active Substance: SILDENAFIL CITRATE
  4. ELIQUIS [Concomitant]
     Active Substance: APIXABAN
  5. TYVASO [Concomitant]
     Active Substance: TREPROSTINIL

REACTIONS (4)
  - Nausea [Unknown]
  - Vomiting [Unknown]
  - Migraine [Unknown]
  - Headache [Unknown]
